FAERS Safety Report 8784443 (Version 1)
Quarter: 2012Q4

REPORT INFORMATION
  Report Type: 
  Country: US (occurrence: US)
  Receive Date: 20120913
  Receipt Date: 20120913
  Transmission Date: 20130627
  Serious: No
  Sender: FDA-Public Use
  Company Number: US-PFIZER INC-2012221018

PATIENT
  Age: 15 Year

DRUGS (2)
  1. ADVIL [Suspect]
     Indication: HEADACHE
     Dosage: UNK, as needed
  2. ADVIL [Suspect]
     Indication: PAIN
     Dosage: 2 DF, as needed

REACTIONS (2)
  - Drug ineffective [Unknown]
  - Drug effect delayed [Unknown]
